FAERS Safety Report 7892267-2 (Version None)
Quarter: 2011Q4

REPORT INFORMATION
  Report Type: 
  Country: None (occurrence: None)
  Receive Date: 20111104
  Receipt Date: 20111028
  Transmission Date: 20120403
  Serious: No
  Sender: FDA-Public Use
  Company Number: US-BIOGENIDEC-2011BI023115

PATIENT
  Sex: Male

DRUGS (1)
  1. TYSABRI [Suspect]
     Indication: MULTIPLE SCLEROSIS
     Route: 042
     Dates: start: 20100122, end: 20110218

REACTIONS (9)
  - DYSPNOEA [None]
  - TEMPERATURE INTOLERANCE [None]
  - BLOOD PRESSURE DECREASED [None]
  - GAIT DISTURBANCE [None]
  - HEART RATE DECREASED [None]
  - LUNG DISORDER [None]
  - MULTIPLE SCLEROSIS RELAPSE [None]
  - GENERAL SYMPTOM [None]
  - CLAUSTROPHOBIA [None]
